FAERS Safety Report 7859149-3 (Version None)
Quarter: 2011Q4

REPORT INFORMATION
  Report Type: 
  Country: None (occurrence: None)
  Receive Date: 20111025
  Receipt Date: 20111018
  Transmission Date: 20120403
  Serious: Yes (Death, Other)
  Sender: FDA-Public Use
  Company Number: CLOF-1000325

PATIENT
  Age: 65 Year
  Sex: Female

DRUGS (11)
  1. EVOLTRA (CLOFARABINE) SOLUTION FOR INFUSION [Suspect]
     Indication: ACUTE MYELOID LEUKAEMIA
     Dosage: 326 MG, QDX5, INTRAVENOUS
     Route: 042
     Dates: start: 20080929, end: 20081003
  2. ITRACONAZOLE [Concomitant]
  3. AMILORIDE (AMILORIDE) [Concomitant]
  4. DAUNORUBICIN HCL [Suspect]
     Indication: ACUTE MYELOID LEUKAEMIA
     Dosage: 90 MG, TIW, 90 MG, TIW, 90 MG, TIW
     Dates: start: 20081003, end: 20081003
  5. DAUNORUBICIN HCL [Suspect]
     Indication: ACUTE MYELOID LEUKAEMIA
     Dosage: 90 MG, TIW, 90 MG, TIW, 90 MG, TIW
     Dates: start: 20080929, end: 20080929
  6. DAUNORUBICIN HCL [Suspect]
     Indication: ACUTE MYELOID LEUKAEMIA
     Dosage: 90 MG, TIW, 90 MG, TIW, 90 MG, TIW
     Dates: start: 20081001, end: 20081001
  7. ACYCLOVIR [Concomitant]
  8. CO-AMILOFRUSE (AMILORIDE HYDROCHLORIDE, FUROSEMIDE) [Concomitant]
  9. LANSOPRAZOLE [Concomitant]
  10. ALLOPURINOL [Concomitant]
  11. AMIKACIN [Concomitant]

REACTIONS (5)
  - MYOCARDIAL INFARCTION [None]
  - ACUTE MYELOID LEUKAEMIA [None]
  - SUDDEN DEATH [None]
  - PANCYTOPENIA [None]
  - CEREBROVASCULAR ACCIDENT [None]
